FAERS Safety Report 20061679 (Version 1)
Quarter: 2021Q4

REPORT INFORMATION
  Report Type: Other
  Country: MX (occurrence: None)
  Receive Date: 20211112
  Receipt Date: 20211112
  Transmission Date: 20220303
  Serious: Yes (Other)
  Sender: FDA-Public Use
  Company Number: MX-Inventia-000148

PATIENT
  Age: 19 Year
  Sex: Female

DRUGS (6)
  1. FLUOXETINE [Suspect]
     Active Substance: FLUOXETINE HYDROCHLORIDE
     Indication: Major depression
  2. ESCITALOPRAM [Suspect]
     Active Substance: ESCITALOPRAM OXALATE
     Indication: Major depression
  3. ATOMOXETINE [Suspect]
     Active Substance: ATOMOXETINE
     Indication: Major depression
  4. FLUOXETINE [Suspect]
     Active Substance: FLUOXETINE HYDROCHLORIDE
     Indication: Persistent depressive disorder
  5. ESCITALOPRAM [Suspect]
     Active Substance: ESCITALOPRAM OXALATE
     Indication: Persistent depressive disorder
  6. ATOMOXETINE [Suspect]
     Active Substance: ATOMOXETINE
     Indication: Persistent depressive disorder

REACTIONS (3)
  - Drug resistance [Unknown]
  - Major depression [Recovered/Resolved]
  - Condition aggravated [Recovered/Resolved]
